FAERS Safety Report 9933409 (Version 2)
Quarter: 2014Q2

REPORT INFORMATION
  Report Type: Report from Study
  Country: US (occurrence: US)
  Receive Date: 20140228
  Receipt Date: 20140429
  Transmission Date: 20141212
  Serious: No
  Sender: FDA-Public Use
  Company Number: US-ABBVIE-14P-163-1199121-00

PATIENT
  Age: 63 Year
  Sex: Male
  Weight: 86.26 kg

DRUGS (5)
  1. ANDROGEL [Suspect]
     Indication: BLOOD TESTOSTERONE DECREASED
     Dates: start: 201302, end: 201308
  2. ANDROGEL [Suspect]
     Dates: start: 201308
  3. TOPROL [Concomitant]
     Indication: HYPERTENSION
  4. LANOXIN [Concomitant]
     Indication: ATRIAL FIBRILLATION
  5. BENICAR [Concomitant]
     Indication: HYPERTENSION

REACTIONS (2)
  - Drug administered at inappropriate site [Recovered/Resolved]
  - Application site rash [Recovered/Resolved]
